FAERS Safety Report 14553376 (Version 1)
Quarter: 2018Q1

REPORT INFORMATION
  Report Type: Spontaneous
  Country: US (occurrence: US)
  Receive Date: 20180216
  Receipt Date: 20180216
  Transmission Date: 20180509
  Serious: No
  Sender: FDA-Public Use
  Company Number: None

PATIENT
  Age: 67 Year
  Sex: Male
  Weight: 90 kg

DRUGS (1)
  1. TRAMADOL. [Suspect]
     Active Substance: TRAMADOL
     Indication: BACK PAIN
     Route: 048
     Dates: start: 20180101, end: 20180211

REACTIONS (4)
  - Drug ineffective [None]
  - Musculoskeletal pain [None]
  - Somnolence [None]
  - Dizziness [None]

NARRATIVE: CASE EVENT DATE: 20180212
